FAERS Safety Report 10248912 (Version 1)
Quarter: 2014Q2

REPORT INFORMATION
  Report Type: Report from Study
  Country: US (occurrence: US)
  Receive Date: 20140620
  Receipt Date: 20140620
  Transmission Date: 20141212
  Serious: Yes (Other)
  Sender: FDA-Public Use
  Company Number: US-SA-2014SA076166

PATIENT
  Age: 47 Year
  Sex: Female

DRUGS (2)
  1. LANTUS SOLOSTAR [Suspect]
     Indication: DIABETES MELLITUS
     Dosage: DOSE:38 UNIT(S)
     Route: 065
     Dates: start: 2010
  2. INSULIN ASPART [Concomitant]

REACTIONS (6)
  - Blindness [Not Recovered/Not Resolved]
  - Neuropathy peripheral [Not Recovered/Not Resolved]
  - Renal disorder [Not Recovered/Not Resolved]
  - Disability [Not Recovered/Not Resolved]
  - Retinopathy [Not Recovered/Not Resolved]
  - Drug dose omission [Unknown]
